FAERS Safety Report 17670706 (Version 1)
Quarter: 2020Q2

REPORT INFORMATION
  Report Type: Spontaneous
  Country: US (occurrence: US)
  Receive Date: 20200415
  Receipt Date: 20200415
  Transmission Date: 20200713
  Serious: Yes (Hospitalization)
  Sender: FDA-Public Use
  Company Number: None

PATIENT
  Age: 53 Year
  Sex: Male
  Weight: 90.26 kg

DRUGS (1)
  1. LISINOPRIL (LISINOPRIL 40MG TAB) [Suspect]
     Active Substance: LISINOPRIL
     Dosage: ?          OTHER DOSE:1 TAB;?
     Route: 048
     Dates: start: 20180116, end: 20191202

REACTIONS (4)
  - Acute kidney injury [None]
  - Angioedema [None]
  - Hypotension [None]
  - Shock [None]

NARRATIVE: CASE EVENT DATE: 20191127
